FAERS Safety Report 6027910-6 (Version None)
Quarter: 2008Q4

REPORT INFORMATION
  Report Type: 
  Country: None (occurrence: None)
  Receive Date: 20081230
  Receipt Date: 20081216
  Transmission Date: 20090506
  Serious: Yes (Hospitalization)
  Sender: FDA-Public Use
  Company Number: GXKR2008ID12007

PATIENT
  Age: 41 Year
  Sex: Male
  Weight: 53 kg

DRUGS (2)
  1. DEXAMETHASONE [Suspect]
     Indication: MULTIPLE MYELOMA
     Dosage: 40 MG, DAY 1 - 4, 5 CYCLES
     Dates: start: 20050301, end: 20050401
  2. CYCLOPHOSPHAMIDE [Suspect]
     Indication: MULTIPLE MYELOMA
     Dosage: 400 MG, DAY 1 - 4, 5 CYCLES
     Dates: start: 20050301, end: 20050401

REACTIONS (5)
  - ACTIVATED PARTIAL THROMBOPLASTIN TIME PROLONGED [None]
  - ANAEMIA [None]
  - BACK PAIN [None]
  - HEPATIC STEATOSIS [None]
  - MYELOMA RECURRENCE [None]
